FAERS Safety Report 13576419 (Version 2)
Quarter: 2017Q2

REPORT INFORMATION
  Report Type: Spontaneous
  Country: NL (occurrence: NL)
  Receive Date: 20170524
  Receipt Date: 20170529
  Transmission Date: 20170830
  Serious: Yes (Other)
  Sender: FDA-Public Use
  Company Number: NL-GLENMARK PHARMACEUTICALS-2017GMK027582

PATIENT
  Age: 65 Year
  Sex: Male

DRUGS (6)
  1. PENICILLIN G                       /00000901/ [Concomitant]
     Active Substance: PENICILLIN G
     Dosage: 20 MILLION UNITS ON DAY 5 TO 21; 8-HOUR CONTINUOUS INFUSION
     Route: 042
  2. PENICILLIN G                       /00000901/ [Concomitant]
     Active Substance: PENICILLIN G
     Indication: AMYOTROPHIC LATERAL SCLEROSIS
     Dosage: 1 MILLION UNITS ON DAY 1; 8-HOUR CONTINUOUS INFUSION
     Route: 042
  3. PENICILLIN G                       /00000901/ [Concomitant]
     Active Substance: PENICILLIN G
     Dosage: 3 MILLION UNITS ON DAY 2; 8-HOUR CONTINUOUS INFUSION
     Route: 042
  4. HYDROCORTISONE BUTYRATE. [Suspect]
     Active Substance: HYDROCORTISONE BUTYRATE
     Indication: AMYOTROPHIC LATERAL SCLEROSIS
     Dosage: 100 MG, QD 8-HOUR CONTINUOUS INFUSION ON EACH TREATMENT DAY
     Route: 042
  5. PENICILLIN G                       /00000901/ [Concomitant]
     Active Substance: PENICILLIN G
     Dosage: 5 MILLION UNITS ON DAY 3; 8-HOUR CONTINUOUS INFUSION
     Route: 042
  6. PENICILLIN G                       /00000901/ [Concomitant]
     Active Substance: PENICILLIN G
     Dosage: 10 MILLION UNITS ON DAY 4; 8-HOUR CONTINUOUS INFUSION
     Route: 042

REACTIONS (2)
  - Headache [Recovered/Resolved]
  - Blood pressure increased [Recovered/Resolved]
